FAERS Safety Report 19085346 (Version 1)
Quarter: 2021Q2

REPORT INFORMATION
  Report Type: Spontaneous
  Country: PL (occurrence: PL)
  Receive Date: 20210401
  Receipt Date: 20210401
  Transmission Date: 20210717
  Serious: Yes (Hospitalization)
  Sender: FDA-Public Use
  Company Number: PL-BAUSCH-BL-2021-010649

PATIENT
  Age: 54 Year
  Sex: Female

DRUGS (5)
  1. DIKLOFENAK [Suspect]
     Active Substance: DICLOFENAC SODIUM
     Indication: SUICIDE ATTEMPT
     Route: 065
  2. IBUPROM [Suspect]
     Active Substance: IBUPROFEN
     Indication: SUICIDE ATTEMPT
     Route: 065
  3. KETONAL (KETOPROFEN) [Suspect]
     Active Substance: KETOPROFEN
     Indication: SUICIDE ATTEMPT
     Route: 065
  4. ASPIRIN. [Suspect]
     Active Substance: ASPIRIN
     Indication: SUICIDE ATTEMPT
     Route: 065
  5. TRAMAL [Suspect]
     Active Substance: TRAMADOL
     Indication: SUICIDE ATTEMPT
     Route: 048

REACTIONS (4)
  - Gastrointestinal necrosis [Recovered/Resolved]
  - Obstruction gastric [Recovered/Resolved]
  - Suicide attempt [Unknown]
  - Intentional overdose [Unknown]
